FAERS Safety Report 21972281 (Version 1)
Quarter: 2023Q1

REPORT INFORMATION
  Report Type: Spontaneous
  Country: US (occurrence: None)
  Receive Date: 20230207
  Receipt Date: 20230207
  Transmission Date: 20230417
  Serious: Yes (Disabling)
  Sender: FDA-Public Use
  Company Number: None

PATIENT
  Age: 38 Year
  Sex: Male
  Weight: 69.75 kg

DRUGS (3)
  1. MINOXIDIL [Suspect]
     Active Substance: MINOXIDIL
     Indication: Alopecia
     Dates: start: 20130602, end: 20130901
  2. ROSUVASTATIN [Concomitant]
     Active Substance: ROSUVASTATIN
  3. VITAMIN D NOS [Concomitant]
     Active Substance: VITAMIN D NOS

REACTIONS (12)
  - Insurance issue [None]
  - Hypogonadism [None]
  - Erectile dysfunction [None]
  - Autonomic nervous system imbalance [None]
  - Diabetes mellitus [None]
  - Small fibre neuropathy [None]
  - Blood testosterone increased [None]
  - Nonspecific reaction [None]
  - Nervous system disorder [None]
  - Postural orthostatic tachycardia syndrome [None]
  - Heart rate irregular [None]
  - Blood pressure systolic abnormal [None]

NARRATIVE: CASE EVENT DATE: 20130603
